FAERS Safety Report 13873072 (Version 4)
Quarter: 2019Q4

REPORT INFORMATION
  Report Type: Spontaneous
  Country: GB (occurrence: GB)
  Receive Date: 20170816
  Receipt Date: 20191114
  Transmission Date: 20200122
  Serious: Yes (Death, Other)
  Sender: FDA-Public Use
  Company Number: GB-AUROBINDO-AUR-APL-2017-38614

PATIENT
  Age: 39 Year
  Sex: Female
  Weight: 56 kg

DRUGS (7)
  1. MIRTAZAPINE. [Suspect]
     Active Substance: MIRTAZAPINE
     Indication: DEPRESSION
     Dosage: 15 MILLIGRAM
     Route: 048
     Dates: start: 20170531, end: 20170614
  2. MIRTAZAPINE. [Suspect]
     Active Substance: MIRTAZAPINE
     Dosage: 30 MILLIGRAM
     Route: 048
     Dates: start: 20170603, end: 20170612
  3. MIRTAZAPINE. [Suspect]
     Active Substance: MIRTAZAPINE
     Dosage: 15 MILLIGRAM
     Route: 048
     Dates: start: 20170601, end: 20170603
  4. ZOPICLONE FILM COATED TABLET [Suspect]
     Active Substance: ZOPICLONE
     Indication: INSOMNIA
     Dosage: 7.5 MILLIGRAM
     Route: 048
     Dates: start: 20170607
  5. MIRTAZAPINE. [Suspect]
     Active Substance: MIRTAZAPINE
     Indication: PERINATAL DEPRESSION
     Dosage: 15 MILLIGRAM
     Route: 048
     Dates: start: 20170612, end: 20170614
  6. ZOPICLONE FILM COATED TABLET [Suspect]
     Active Substance: ZOPICLONE
     Dosage: 7.5 MILLIGRAM
     Route: 048
     Dates: start: 20170609
  7. ZOPICLONE FILM COATED TABLET [Suspect]
     Active Substance: ZOPICLONE
     Dosage: 3.75 MILLIGRAM
     Route: 048
     Dates: start: 20170607, end: 20170609

REACTIONS (12)
  - Vomiting [Unknown]
  - Disorientation [Unknown]
  - Tremor [Unknown]
  - Akathisia [Unknown]
  - Product prescribing error [Unknown]
  - Hypersensitivity [Unknown]
  - Suicidal ideation [Not Recovered/Not Resolved]
  - Depression [Unknown]
  - Drug monitoring procedure not performed [Unknown]
  - Completed suicide [Fatal]
  - Hallucinations, mixed [Unknown]
  - Tinnitus [Unknown]

NARRATIVE: CASE EVENT DATE: 2017
